FAERS Safety Report 5843963-X (Version None)
Quarter: 2008Q3

REPORT INFORMATION
  Report Type: 
  Country: None (occurrence: None)
  Receive Date: 20080808
  Receipt Date: 20080729
  Transmission Date: 20090109
  Serious: Yes (Hospitalization)
  Sender: FDA-Public Use
  Company Number: 1000000384

PATIENT
  Age: 87 Year
  Sex: Male

DRUGS (13)
  1. MEMANTINE HCL [Suspect]
     Dosage: 1 DOSAGE FORMS (0.5 DOSAGE, 2 IN 1 D), ORAL
     Route: 048
  2. PREVISCAN (1.25 DOSAGE FORMS) [Suspect]
     Dosage: 1.25 DOSAGE FORMS (1.25 DOSAGE FORMS,1 IN 1 D), ORAL
     Route: 048
  3. TAHOR (40 MILLIGRAM, TABLETS) [Suspect]
     Dosage: 40 MG (40 MG, 1 IN 1 D), ORAL
     Route: 048
  4. CASODEX [Suspect]
     Dosage: 1 DOSAGE FORMS (1 DOSAGE FORMS, 1 IN 1 D), ORAL
     Route: 048
  5. ALMOR [Concomitant]
  6. EQUANIL [Concomitant]
  7. CORVASAL [Concomitant]
  8. BISOPROLOL FUMARATE [Concomitant]
  9. LANTUS [Concomitant]
  10. KAYEXALATE [Concomitant]
  11. FUMAFER [Concomitant]
  12. DEBRIDAT [Concomitant]
  13. LEUPROLIDE ACETATE [Concomitant]

REACTIONS (6)
  - ANAEMIA [None]
  - COAGULATION TIME PROLONGED [None]
  - DRUG INTERACTION [None]
  - HYPERKALAEMIA [None]
  - OVERDOSE [None]
  - RECTAL HAEMORRHAGE [None]
